FAERS Safety Report 16363454 (Version 1)
Quarter: 2019Q2

REPORT INFORMATION
  Report Type: Spontaneous
  Country: CN (occurrence: CN)
  Receive Date: 20190528
  Receipt Date: 20190528
  Transmission Date: 20190711
  Serious: Yes (Death, Hospitalization)
  Sender: FDA-Public Use
  Company Number: CN-INGENUS PHARMACEUTICALS, LLC-2019INF000176

PATIENT
  Age: 53 Year
  Sex: Female

DRUGS (6)
  1. ADRIAMYCIN [Suspect]
     Active Substance: DOXORUBICIN HYDROCHLORIDE
     Indication: SARCOMA
     Dosage: 25 MILLIGRAM/SQ. METER, ON DAY 1
     Route: 065
  2. IFOSFAMIDE. [Suspect]
     Active Substance: IFOSFAMIDE
     Indication: SARCOMA
     Dosage: 1.2 GRAM PER SQUARE METRE, ON DAYS 2 TO 4
     Route: 065
  3. DACARBAZINE. [Suspect]
     Active Substance: DACARBAZINE
     Indication: SARCOMA
     Dosage: 375 MILLIGRAM/SQ. METER, ON DAY 1
     Route: 065
  4. OXALIPLATIN. [Suspect]
     Active Substance: OXALIPLATIN
     Indication: SARCOMA
     Dosage: 85 MILLIGRAM/SQ. METER, ON DAY 2
     Route: 065
  5. VINBLASTINE [Suspect]
     Active Substance: VINBLASTINE
     Indication: SARCOMA
     Dosage: 6 MILLIGRAM/SQ. METER, ON DAY 1
     Route: 065
  6. BLEOMYCIN [Suspect]
     Active Substance: BLEOMYCIN SULFATE
     Indication: SARCOMA
     Dosage: 10 MILLIGRAM/SQ. METER, ON DAY 1
     Route: 065

REACTIONS (1)
  - Hepatic failure [Fatal]
